FAERS Safety Report 9502914 (Version 1)
Quarter: 2013Q3

REPORT INFORMATION
  Report Type: Report from Study
  Country: US (occurrence: US)
  Receive Date: 20130906
  Receipt Date: 20130906
  Transmission Date: 20140515
  Serious: Yes (Hospitalization)
  Sender: FDA-Public Use
  Company Number: PHEH2013US018573

PATIENT
  Age: 16 Year
  Sex: Male

DRUGS (4)
  1. TOBI [Suspect]
     Indication: CYSTIC FIBROSIS
     Dosage: 300 MG, BID
  2. ALBUTEROL [Concomitant]
     Dosage: UNK UKN, UNK
  3. PULMOZYME [Concomitant]
     Dosage: UNK UKN, UNK
  4. VITAMINS NOS [Concomitant]
     Dosage: UNK UKN, UNK

REACTIONS (2)
  - Influenza [Recovering/Resolving]
  - Pyrexia [Recovering/Resolving]
